FAERS Safety Report 10743732 (Version 2)
Quarter: 2015Q1

REPORT INFORMATION
  Report Type: Spontaneous
  Country: US (occurrence: US)
  Receive Date: 20150128
  Receipt Date: 20150216
  Transmission Date: 20150721
  Serious: Yes (Death, Life-Threatening)
  Sender: FDA-Public Use
  Company Number: US-ROCHE-1526408

PATIENT
  Age: 92 Year
  Sex: Female
  Weight: 75 kg

DRUGS (4)
  1. ALTEPLASE [Suspect]
     Active Substance: ALTEPLASE
     Indication: CEREBROVASCULAR ACCIDENT
     Dosage: OVER 1 MIN
     Route: 040
     Dates: start: 20141223, end: 20141223
  2. BENADRYL [Concomitant]
     Active Substance: DIPHENHYDRAMINE HYDROCHLORIDE
     Indication: HYPERSENSITIVITY
     Route: 042
     Dates: start: 20141223, end: 20141223
  3. SOLU-MEDROL [Concomitant]
     Active Substance: METHYLPREDNISOLONE SODIUM SUCCINATE
     Indication: HYPERSENSITIVITY
     Route: 042
     Dates: start: 20141223, end: 20141223
  4. ALTEPLASE [Suspect]
     Active Substance: ALTEPLASE
     Dosage: OVER 1 HOUR
     Route: 042
     Dates: start: 20141223, end: 20141223

REACTIONS (7)
  - Respiratory distress [Recovered/Resolved]
  - Stridor [Recovered/Resolved]
  - Swollen tongue [Recovered/Resolved]
  - Dysphagia [Unknown]
  - Angioedema [Fatal]
  - Aphasia [Unknown]
  - Hemiplegia [Unknown]

NARRATIVE: CASE EVENT DATE: 20141223
